FAERS Safety Report 14244804 (Version 1)
Quarter: 2017Q4

REPORT INFORMATION
  Report Type: Spontaneous
  Country: US (occurrence: US)
  Receive Date: 20171201
  Receipt Date: 20171201
  Transmission Date: 20180321
  Serious: Yes (Hospitalization, Other)
  Sender: FDA-Public Use
  Company Number: US-TAKEDA-2017TUS024824

PATIENT
  Sex: Female
  Weight: 87.08 kg

DRUGS (5)
  1. HUMIRA [Suspect]
     Active Substance: ADALIMUMAB
     Indication: COLITIS ULCERATIVE
     Dosage: 40 MG/0.8ML
     Route: 058
     Dates: start: 2016, end: 2016
  2. ENTYVIO [Suspect]
     Active Substance: VEDOLIZUMAB
     Indication: PRODUCT USED FOR UNKNOWN INDICATION
     Dosage: UNK
     Route: 065
  3. CREON [Suspect]
     Active Substance: PANCRELIPASE AMYLASE\PANCRELIPASE LIPASE\PANCRELIPASE PROTEASE
     Indication: AUTOIMMUNE PANCREATITIS
     Dosage: 48000 IU, UNK
     Route: 065
     Dates: start: 2015
  4. HUMIRA [Suspect]
     Active Substance: ADALIMUMAB
     Dosage: 40 MG/0.8ML
     Route: 058
  5. HUMIRA [Suspect]
     Active Substance: ADALIMUMAB
     Dosage: 40 MG/0.8ML
     Route: 058
     Dates: start: 201705, end: 201705

REACTIONS (15)
  - Muscle spasms [Unknown]
  - Skin lesion [Unknown]
  - Joint swelling [Unknown]
  - Drug ineffective [Unknown]
  - Breast reconstruction [Unknown]
  - Dyspnoea [Recovered/Resolved]
  - Pharyngeal oedema [Recovered/Resolved]
  - Erythema nodosum [Recovered/Resolved]
  - Arthralgia [Unknown]
  - Influenza like illness [Recovered/Resolved]
  - Colitis ulcerative [Recovered/Resolved]
  - Hypersensitivity [Recovered/Resolved]
  - Alopecia [Unknown]
  - Myalgia [Unknown]
  - Autoimmune pancreatitis [Recovered/Resolved]

NARRATIVE: CASE EVENT DATE: 2016
